FAERS Safety Report 4867892-3 (Version None)
Quarter: 2005Q4

REPORT INFORMATION
  Report Type: 
  Country: None (occurrence: None)
  Receive Date: 20051227
  Receipt Date: 20051212
  Transmission Date: 20060501
  Serious: No
  Sender: FDA-Public Use
  Company Number: 2005-135788-NL

PATIENT
  Sex: Female

DRUGS (2)
  1. PANCREATIN TRIPLE STRENGTH CAP [Suspect]
     Dosage: DF
  2. PANCRELIPASE [Suspect]
     Dosage: DF

REACTIONS (3)
  - DIZZINESS [None]
  - HYPOGLYCAEMIA [None]
  - VOMITING [None]
